FAERS Safety Report 6968943-2 (Version None)
Quarter: 2010Q3

REPORT INFORMATION
  Report Type: 
  Country: None (occurrence: None)
  Receive Date: 20100903
  Receipt Date: 20100903
  Transmission Date: 20110219
  Serious: Yes (Hospitalization)
  Sender: FDA-Public Use
  Company Number: None

PATIENT
  Age: 67 Year
  Sex: Male
  Weight: 136.08 kg

DRUGS (1)
  1. METOLAZONE [Suspect]
     Indication: HYPERTENSION
     Dosage: 5 MG EVERY DAY PO
     Route: 048
     Dates: start: 20091210, end: 20100501

REACTIONS (4)
  - AZOTAEMIA [None]
  - CELLULITIS [None]
  - DEHYDRATION [None]
  - RENAL FAILURE ACUTE [None]
